FAERS Safety Report 7980736-6 (Version None)
Quarter: 2011Q4

REPORT INFORMATION
  Report Type: 
  Country: None (occurrence: None)
  Receive Date: 20111214
  Receipt Date: 20111205
  Transmission Date: 20120403
  Serious: Yes (Hospitalization, Other)
  Sender: FDA-Public Use
  Company Number: US-ASTRAZENECA-2011SE53365

PATIENT
  Age: 44 Year
  Sex: Female

DRUGS (2)
  1. NEXIUM [Suspect]
     Indication: GASTRIC DISORDER
     Route: 048
  2. PRILOSEC [Suspect]
     Route: 048

REACTIONS (8)
  - THROAT IRRITATION [None]
  - MALAISE [None]
  - ADVERSE EVENT [None]
  - DRUG DOSE OMISSION [None]
  - GASTRIC ULCER HAEMORRHAGE [None]
  - GASTROOESOPHAGEAL REFLUX DISEASE [None]
  - DRUG INEFFECTIVE [None]
  - DYSPEPSIA [None]
